FAERS Safety Report 6976946-7 (Version None)
Quarter: 2010Q3

REPORT INFORMATION
  Report Type: 
  Country: None (occurrence: None)
  Receive Date: 20100910
  Receipt Date: 20100902
  Transmission Date: 20110219
  Serious: Yes (Death)
  Sender: FDA-Public Use
  Company Number: US-EISAI INC.-E7272-00075-SPO-US

PATIENT
  Age: 66 Year
  Sex: Male

DRUGS (1)
  1. ONTAK [Suspect]
     Indication: MYCOSIS FUNGOIDES
     Dosage: UNKNOWN
     Route: 041
     Dates: start: 20100101, end: 20100101

REACTIONS (2)
  - CAPILLARY LEAK SYNDROME [None]
  - CARDIAC ARREST [None]
